FAERS Safety Report 10836782 (Version 1)
Quarter: 2015Q1

REPORT INFORMATION
  Report Type: Report from Study
  Country: GB (occurrence: None)
  Receive Date: 20150218
  Receipt Date: 20150218
  Transmission Date: 20150721
  Serious: Yes (Death)
  Sender: FDA-Public Use
  Company Number: 2015FE00312

PATIENT
  Age: 73 Year
  Sex: Female

DRUGS (1)
  1. SOMATROPIN [Suspect]
     Active Substance: SOMATROPIN
     Indication: HYPOPITUITARISM

REACTIONS (1)
  - Off label use [None]

NARRATIVE: CASE EVENT DATE: 20150129
